FAERS Safety Report 4466747-6 (Version None)
Quarter: 2004Q3

REPORT INFORMATION
  Report Type: 
  Country: None (occurrence: None)
  Receive Date: 20040929
  Receipt Date: 20040916
  Transmission Date: 20050211
  Serious: Yes (Hospitalization)
  Sender: FDA-Public Use
  Company Number: 2004UW19346

PATIENT
  Age: 52 Year
  Sex: Female

DRUGS (1)
  1. CRESTOR [Suspect]
     Dosage: 10 MG
     Dates: start: 20040902

REACTIONS (6)
  - DIARRHOEA [None]
  - FATIGUE [None]
  - NAUSEA [None]
  - RENAL FAILURE [None]
  - RHABDOMYOLYSIS [None]
  - VOMITING [None]
